FAERS Safety Report 18846492 (Version 1)
Quarter: 2021Q1

REPORT INFORMATION
  Report Type: Report from Study
  Country: US (occurrence: US)
  Receive Date: 20210203
  Receipt Date: 20210203
  Transmission Date: 20210419
  Serious: No
  Sender: FDA-Public Use
  Company Number: US-EXELIXIS-CABO-20028908

PATIENT
  Sex: Male

DRUGS (2)
  1. CABOMETYX [Suspect]
     Active Substance: CABOZANTINIB S-MALATE
     Indication: RENAL CANCER
     Dosage: 60 MG, QD
  2. CABOMETYX [Suspect]
     Active Substance: CABOZANTINIB S-MALATE
     Dosage: 40 MG

REACTIONS (7)
  - Nausea [Unknown]
  - Gait disturbance [Not Recovered/Not Resolved]
  - Chills [Unknown]
  - Decreased appetite [Unknown]
  - Painful respiration [Unknown]
  - Weight decreased [Unknown]
  - Pain [Not Recovered/Not Resolved]
